FAERS Safety Report 15191054 (Version 1)
Quarter: 2018Q3

REPORT INFORMATION
  Report Type: Spontaneous
  Country: US (occurrence: US)
  Receive Date: 20180724
  Receipt Date: 20180724
  Transmission Date: 20181010
  Serious: Yes (Other)
  Sender: FDA-Public Use
  Company Number: US-TEVA-2018-US-930737

PATIENT
  Sex: Male

DRUGS (1)
  1. LORAZEPAM ACTAVIS [Suspect]
     Active Substance: LORAZEPAM
     Indication: ANXIETY
     Dates: start: 2018

REACTIONS (7)
  - Night sweats [Unknown]
  - Heart rate increased [Unknown]
  - Withdrawal syndrome [Unknown]
  - Wrong technique in product usage process [Unknown]
  - Nausea [Unknown]
  - Respiratory depression [Unknown]
  - Abdominal discomfort [Unknown]
